FAERS Safety Report 9338088 (Version 1)
Quarter: 2013Q2

REPORT INFORMATION
  Report Type: Report from Study
  Country: US (occurrence: US)
  Receive Date: 20130610
  Receipt Date: 20130610
  Transmission Date: 20140414
  Serious: Yes (Hospitalization)
  Sender: FDA-Public Use
  Company Number: US-ROCHE-1233890

PATIENT
  Sex: Female

DRUGS (1)
  1. LUCENTIS [Suspect]
     Indication: RETINOPATHY
     Route: 065
     Dates: start: 201302

REACTIONS (4)
  - Postoperative wound infection [Recovering/Resolving]
  - Abdominal pain upper [Recovering/Resolving]
  - Hypotension [Recovering/Resolving]
  - Pyrexia [Recovering/Resolving]
